FAERS Safety Report 5724380-X (Version None)
Quarter: 2008Q2

REPORT INFORMATION
  Report Type: 
  Country: None (occurrence: None)
  Receive Date: 20080429
  Receipt Date: 20080414
  Transmission Date: 20081010
  Serious: Yes (Hospitalization)
  Sender: FDA-Public Use
  Company Number: S08-FRA-01556-01

PATIENT
  Age: 35 Year
  Sex: Male

DRUGS (8)
  1. CITALOPRAM HYDROBROMIDE [Suspect]
     Dosage: 20 MG QD;PO
     Route: 048
     Dates: end: 20071208
  2. LAMICTAL [Suspect]
     Dosage: 50, QD; PO
     Route: 048
     Dates: end: 20071208
  3. MOZINAN (LEVOMEPROMAZINE) [Suspect]
     Dosage: 75 MG QD;PO
     Route: 048
     Dates: end: 20071209
  4. HALDOL [Suspect]
     Dosage: 10 MG QD;PO
     Route: 048
     Dates: end: 20071209
  5. TEGRETOL [Suspect]
     Dates: end: 20071208
  6. IMOVANE (ZOPICLONE) [Concomitant]
  7. URBANYL (CLOBAZAM) [Concomitant]
  8. SEGLOR (DIHYDROERGOTAMINE MESILATE) [Concomitant]

REACTIONS (8)
  - ASPIRATION [None]
  - BLOOD FOLATE DECREASED [None]
  - DRUG LEVEL DECREASED [None]
  - DRUG LEVEL INCREASED [None]
  - LUNG DISORDER [None]
  - PANCYTOPENIA [None]
  - SEPTIC SHOCK [None]
  - SPINAL MYELOGRAM ABNORMAL [None]
